FAERS Safety Report 7674036-1 (Version None)
Quarter: 2011Q3

REPORT INFORMATION
  Report Type: 
  Country: None (occurrence: None)
  Receive Date: 20110808
  Receipt Date: 20110729
  Transmission Date: 20111222
  Serious: Yes (Hospitalization)
  Sender: FDA-Public Use
  Company Number: CM11-0027

PATIENT
  Sex: Female

DRUGS (1)
  1. LARYNG-O-JET KIT [Suspect]
     Indication: ANAESTHESIA PROCEDURE
     Dates: start: 20110729

REACTIONS (1)
  - FOREIGN BODY [None]
